FAERS Safety Report 8274068-9 (Version None)
Quarter: 2012Q2

REPORT INFORMATION
  Report Type: 
  Country: None (occurrence: None)
  Receive Date: 20120409
  Receipt Date: 20120327
  Transmission Date: 20120825
  Serious: Yes (Hospitalization)
  Sender: FDA-Public Use
  Company Number: 2012AL000032

PATIENT
  Age: 82 Year
  Sex: Male
  Weight: 83 kg

DRUGS (2)
  1. FOLOTYN [Suspect]
     Indication: OESOPHAGEAL ADENOCARCINOMA
     Dosage: 80 MG/M**2; QOW; IV
     Route: 042
     Dates: start: 20120123, end: 20120312
  2. OXALIPLATIN [Suspect]
     Indication: OESOPHAGEAL ADENOCARCINOMA
     Dosage: 65 MG/M**2; QOW
     Dates: start: 20120123, end: 20120312

REACTIONS (5)
  - CULTURE URINE POSITIVE [None]
  - ESCHERICHIA INFECTION [None]
  - URINARY TRACT INFECTION [None]
  - ASTHENIA [None]
  - LEUKOCYTOSIS [None]
